FAERS Safety Report 26050932 (Version 2)
Quarter: 2025Q4

REPORT INFORMATION
  Report Type: Report from Study
  Country: US (occurrence: US)
  Receive Date: 20251116
  Receipt Date: 20251215
  Transmission Date: 20260118
  Serious: Yes (Hospitalization, Other)
  Sender: ABBVIE
  Company Number: US-ABBVIE-6546458

PATIENT
  Age: 62 Year
  Sex: Female

DRUGS (3)
  1. CREON [Suspect]
     Active Substance: PANCRELIPASE AMYLASE\PANCRELIPASE LIPASE\PANCRELIPASE PROTEASE
     Indication: Product used for unknown indication
     Route: 048
  2. CREON [Suspect]
     Active Substance: PANCRELIPASE AMYLASE\PANCRELIPASE LIPASE\PANCRELIPASE PROTEASE
     Indication: Product used for unknown indication
     Route: 048
  3. LEVOFLOXACIN [Suspect]
     Active Substance: LEVOFLOXACIN
     Indication: Product used for unknown indication
     Route: 065

REACTIONS (11)
  - Escherichia infection [Unknown]
  - Abdominal pain upper [Unknown]
  - Dysphonia [Unknown]
  - Pancreatic failure [Unknown]
  - Tendon disorder [Unknown]
  - Chemotherapy [Unknown]
  - Diarrhoea [Unknown]
  - Incorrect dose administered [Unknown]
  - Gastrointestinal disorder [Recovering/Resolving]
  - Regurgitation [Recovering/Resolving]
  - Malaise [Unknown]

NARRATIVE: CASE EVENT DATE: 20251209
